FAERS Safety Report 17124755 (Version 1)
Quarter: 2019Q4

REPORT INFORMATION
  Report Type: Spontaneous
  Country: AU (occurrence: AU)
  Receive Date: 20191206
  Receipt Date: 20191206
  Transmission Date: 20200122
  Serious: Yes (Other)
  Sender: FDA-Public Use
  Company Number: AU-BAUSCH-BL-2019-063711

PATIENT
  Age: 52 Year
  Sex: Female

DRUGS (3)
  1. PREDNISOLONE. [Suspect]
     Active Substance: PREDNISOLONE
     Indication: PRODUCT USED FOR UNKNOWN INDICATION
     Route: 065
  2. TACROLIMUS. [Suspect]
     Active Substance: TACROLIMUS
     Indication: PRODUCT USED FOR UNKNOWN INDICATION
     Route: 065
  3. MYCOPHENOLIC ACID. [Suspect]
     Active Substance: MYCOPHENOLIC ACID
     Indication: PRODUCT USED FOR UNKNOWN INDICATION
     Route: 065

REACTIONS (11)
  - Crystal nephropathy [Unknown]
  - Diarrhoea [Unknown]
  - Acute kidney injury [Unknown]
  - Renal atrophy [Unknown]
  - Urinary tract infection [Unknown]
  - Cytomegalovirus viraemia [Unknown]
  - Kidney fibrosis [Unknown]
  - Kidney transplant rejection [Unknown]
  - Nephropathy [Unknown]
  - Rash [Unknown]
  - Varicella zoster virus infection [Unknown]
